FAERS Safety Report 5813166-3 (Version None)
Quarter: 2008Q3

REPORT INFORMATION
  Report Type: 
  Country: None (occurrence: None)
  Receive Date: 20080717
  Receipt Date: 20080708
  Transmission Date: 20090109
  Serious: Yes (Other)
  Sender: FDA-Public Use
  Company Number: US-WYE-H04875908

PATIENT
  Age: 19 Year
  Sex: Male
  Weight: 72.64 kg

DRUGS (1)
  1. ROBITUSSIN COUGH AND COLD LONG ACTING [Suspect]
     Indication: DRUG ABUSE
     Dosage: 1 BOTTLE DAILY
     Route: 048

REACTIONS (6)
  - DRUG ABUSE [None]
  - DRUG WITHDRAWAL SYNDROME [None]
  - IRRITABILITY [None]
  - MOOD ALTERED [None]
  - OVERDOSE [None]
  - PERSONALITY CHANGE [None]
